FAERS Safety Report 6432230-1 (Version None)
Quarter: 2009Q4

REPORT INFORMATION
  Report Type: 
  Country: None (occurrence: None)
  Receive Date: 20091105
  Receipt Date: 20091022
  Transmission Date: 20100525
  Serious: Yes (Other)
  Sender: FDA-Public Use
  Company Number: AUR-APL-2009-01031

PATIENT
  Age: 52 Year
  Sex: Female

DRUGS (4)
  1. SIMVASTATIN [Suspect]
     Dosage: ORAL
     Route: 048
  2. AMLODIPINE [Concomitant]
  3. PREDNISOLONE [Concomitant]
  4. AZATHIOPRINE [Concomitant]

REACTIONS (1)
  - CEREBROVASCULAR ACCIDENT [None]
